FAERS Safety Report 9278157 (Version 3)
Quarter: 2013Q3

REPORT INFORMATION
  Report Type: Spontaneous
  Country: FR (occurrence: FR)
  Receive Date: 20130508
  Receipt Date: 20130912
  Transmission Date: 20140515
  Serious: Yes (Hospitalization, Other)
  Sender: FDA-Public Use
  Company Number: PHHY2013FR044176

PATIENT
  Age: 57 Year
  Sex: Female

DRUGS (4)
  1. RITALINE LP [Suspect]
     Indication: HYPERSOMNIA
     Dosage: 20 MG, QD
     Route: 048
     Dates: start: 2001, end: 20120917
  2. RITALINE LP [Suspect]
     Dosage: 20 MG, QD (WHEN SHE GOT UP AT 5 AM)
     Route: 048
  3. RITALINE LP [Suspect]
     Dosage: 10 MG, QD
     Route: 048
  4. VITAMIIN C [Concomitant]
     Dosage: UNK UKN, UNK

REACTIONS (16)
  - Aneurysm ruptured [Recovered/Resolved]
  - Intracranial aneurysm [Recovered/Resolved]
  - Cerebral haematoma [Recovered/Resolved]
  - Meningorrhagia [Recovered/Resolved]
  - Blood pressure increased [Recovered/Resolved]
  - Hemiplegia [Recovered/Resolved]
  - Aphasia [Recovered/Resolved]
  - Retrograde amnesia [Recovered/Resolved]
  - Coma [Recovered/Resolved]
  - Craniocerebral injury [Unknown]
  - Parosmia [Unknown]
  - Ageusia [Unknown]
  - Dysgeusia [Unknown]
  - Fall [Unknown]
  - Speech disorder [Unknown]
  - Balance disorder [Unknown]
